FAERS Safety Report 25048479 (Version 1)
Quarter: 2025Q1

REPORT INFORMATION
  Report Type: Report from Study
  Country: CA (occurrence: CA)
  Receive Date: 20250307
  Receipt Date: 20250307
  Transmission Date: 20250408
  Serious: Yes (Other)
  Sender: JOHNSON AND JOHNSON
  Company Number: CA-JNJFOC-20241224496

PATIENT
  Age: 30 Year
  Sex: Female
  Weight: 63.3 kg

DRUGS (3)
  1. REMICADE [Suspect]
     Active Substance: INFLIXIMAB
     Indication: Ankylosing spondylitis
     Route: 041
     Dates: start: 20220724
  2. REMICADE [Suspect]
     Active Substance: INFLIXIMAB
     Route: 041
     Dates: start: 20220724
  3. REMICADE [Suspect]
     Active Substance: INFLIXIMAB
     Route: 041
     Dates: start: 20200724

REACTIONS (3)
  - Uveitis [Recovering/Resolving]
  - Influenza like illness [Recovered/Resolved]
  - Streptococcal infection [Unknown]

NARRATIVE: CASE EVENT DATE: 20250204
